FAERS Safety Report 17392866 (Version 1)
Quarter: 2020Q1

REPORT INFORMATION
  Report Type: Spontaneous
  Country: US (occurrence: US)
  Receive Date: 20200207
  Receipt Date: 20200207
  Transmission Date: 20200409
  Serious: No
  Sender: FDA-Public Use
  Company Number: NVSC2020US030721

PATIENT
  Age: 32 Year
  Sex: Female

DRUGS (2)
  1. CLINDAMYCIN. [Suspect]
     Active Substance: CLINDAMYCIN
     Indication: DERMATITIS
     Route: 061
  2. PERMETHRIN. [Suspect]
     Active Substance: PERMETHRIN
     Indication: DERMATITIS
     Route: 065

REACTIONS (1)
  - Drug ineffective for unapproved indication [Unknown]
